FAERS Safety Report 8454401-5 (Version None)
Quarter: 2012Q2

REPORT INFORMATION
  Report Type: 
  Country: None (occurrence: None)
  Receive Date: 20120621
  Receipt Date: 20120614
  Transmission Date: 20120825
  Serious: Yes (Hospitalization)
  Sender: FDA-Public Use
  Company Number: US-BIOGENIDEC-2009BI020519

PATIENT
  Age: 47 Year
  Sex: Female

DRUGS (2)
  1. AVONEX [Suspect]
     Indication: MULTIPLE SCLEROSIS
     Route: 030
  2. AVONEX [Suspect]
     Route: 030
     Dates: start: 20051201

REACTIONS (13)
  - MUSCLE ATROPHY [None]
  - HYPOAESTHESIA [None]
  - PERONEAL NERVE PALSY [None]
  - PROCEDURAL COMPLICATION [None]
  - TEMPERATURE INTOLERANCE [None]
  - MUSCULAR WEAKNESS [None]
  - OVARIAN CYST [None]
  - LEIOMYOMA [None]
  - ANAEMIA [None]
  - PYREXIA [None]
  - MUSCLE TIGHTNESS [None]
  - ABNORMAL LOSS OF WEIGHT [None]
  - NEUROGENIC BLADDER [None]
